FAERS Safety Report 4552973-4 (Version None)
Quarter: 2005Q1

REPORT INFORMATION
  Report Type: 
  Country: None (occurrence: None)
  Receive Date: 20050113
  Receipt Date: 20050104
  Transmission Date: 20050727
  Serious: Yes (Life-Threatening)
  Sender: FDA-Public Use
  Company Number: 2005AC00018

PATIENT
  Age: 27 Year
  Sex: Female
  Weight: 148 kg

DRUGS (9)
  1. LIDOCAINE W/ EPINEPHRINE [Suspect]
     Dosage: 3 ML ONCE ED
     Route: 008
  2. LIDOCAINE [Suspect]
     Dosage: 5 ML ONCE ED
     Route: 008
  3. BUPIVACAINE [Suspect]
     Dosage: 5 ML ONCE ED
     Route: 008
  4. BUPIVACAINE WITH FENTANYL [Suspect]
     Dosage: 10 ML /HR ED
     Route: 008
  5. SUFENTANIL CITRATE [Suspect]
     Dosage: 10 MG ONCE IT
     Route: 037
  6. EPINEPHRINE [Suspect]
     Dosage: 100 UG ONCE IT
     Route: 037
  7. BUPIVACAINE [Suspect]
     Dosage: 0.7 ML ONCE IT
     Route: 037
  8. LIDOCAINE W/ EPINEPHRINE [Suspect]
     Dosage: 3 ML ONCE ED
     Route: 008
  9. RINGER'S [Concomitant]

REACTIONS (10)
  - ANAL DISCOMFORT [None]
  - BLOOD PRESSURE SYSTOLIC DECREASED [None]
  - BRADYCARDIA [None]
  - CARDIAC ARREST [None]
  - COMA [None]
  - MENTAL STATUS CHANGES [None]
  - PULSE PRESSURE DECREASED [None]
  - RESPIRATORY DEPRESSION [None]
  - RESPIRATORY RATE DECREASED [None]
  - SINUS TACHYCARDIA [None]
